FAERS Safety Report 19069519 (Version 1)
Quarter: 2021Q1

REPORT INFORMATION
  Report Type: Spontaneous
  Country: US (occurrence: US)
  Receive Date: 20210329
  Receipt Date: 20210329
  Transmission Date: 20210420
  Serious: No
  Sender: FDA-Public Use
  Company Number: None

PATIENT
  Age: 61 Year
  Sex: Female
  Weight: 74.25 kg

DRUGS (1)
  1. CHLORAPREP [Suspect]
     Active Substance: CHLORHEXIDINE GLUCONATE\ISOPROPYL ALCOHOL
     Dosage: ?          OTHER FREQUENCY:ONE TIME;?
     Route: 061
     Dates: start: 20210302, end: 20210302

REACTIONS (2)
  - Urticaria [None]
  - Application site pruritus [None]

NARRATIVE: CASE EVENT DATE: 20210302
